FAERS Safety Report 6172489-1 (Version None)
Quarter: 2009Q2

REPORT INFORMATION
  Report Type: 
  Country: None (occurrence: None)
  Receive Date: 20090427
  Receipt Date: 20090416
  Transmission Date: 20091009
  Serious: Yes (Life-Threatening, Hospitalization, Other)
  Sender: FDA-Public Use
  Company Number: 2009-00472

PATIENT
  Age: 73 Year
  Sex: Male
  Weight: 86 kg

DRUGS (7)
  1. VELCADE [Suspect]
     Indication: MULTIPLE MYELOMA
     Dosage: 2.6 MG, IV BOLUS
     Route: 040
     Dates: start: 20081124, end: 20090115
  2. PAMIDRONATE DISODIUM [Concomitant]
  3. PENICILLIN ^GRUNENTHAL^ (BENZYLPENICILLIN SODIUM) [Concomitant]
  4. FELODIPINE [Concomitant]
  5. ATENOLOL [Concomitant]
  6. LANSOPRAZOLE [Concomitant]
  7. DEXAMETHASONE 4MG TAB [Concomitant]

REACTIONS (2)
  - INAPPROPRIATE ANTIDIURETIC HORMONE SECRETION [None]
  - ORTHOSTATIC HYPOTENSION [None]
